FAERS Safety Report 12661545 (Version 1)
Quarter: 2016Q3

REPORT INFORMATION
  Report Type: Spontaneous
  Country: US (occurrence: US)
  Receive Date: 20160817
  Receipt Date: 20160817
  Transmission Date: 20161109
  Serious: No
  Sender: FDA-Public Use
  Company Number: US-PFIZER INC-2016363519

PATIENT
  Age: 33 Year
  Sex: Female
  Weight: 82 kg

DRUGS (3)
  1. LEVOTHYROXINE SODIUM. [Suspect]
     Active Substance: LEVOTHYROXINE SODIUM
     Indication: HYPOTHYROIDISM
     Dosage: 75 UG, DAILY (75MCG ONE TABLET BY MOUTH DAILY)
     Route: 048
     Dates: start: 201606, end: 20160720
  2. LYRICA [Concomitant]
     Active Substance: PREGABALIN
     Indication: FIBROMYALGIA
     Dosage: 75 MG, 2X/DAY
     Route: 048
     Dates: start: 201607
  3. TIZANIDINE HCL [Concomitant]
     Active Substance: TIZANIDINE HYDROCHLORIDE
     Indication: DYSKINESIA
     Dosage: 4 MG, AS NEEDED (4MG ONE TABLET BY MOUTH THREE TIMES A DAY AS NEEDED)
     Route: 048

REACTIONS (2)
  - Chest discomfort [Unknown]
  - Intentional product misuse [Unknown]
